FAERS Safety Report 23330119 (Version 1)
Quarter: 2023Q4

REPORT INFORMATION
  Report Type: Spontaneous
  Country: CA (occurrence: CA)
  Receive Date: 20231222
  Receipt Date: 20231222
  Transmission Date: 20240109
  Serious: Yes (Other)
  Sender: FDA-Public Use
  Company Number: CA-ABBVIE-5551282

PATIENT
  Age: 57 Year
  Sex: Male

DRUGS (6)
  1. UPADACITINIB [Suspect]
     Active Substance: UPADACITINIB
     Indication: Product used for unknown indication
     Route: 048
     Dates: start: 202311
  2. Cortiment, /old form/ [Concomitant]
     Indication: Product used for unknown indication
     Dates: start: 202307
  3. ABRILADA [Suspect]
     Active Substance: ADALIMUMAB-AFZB
     Indication: Product used for unknown indication
     Dosage: WEEK 0/END DATE 2023
     Route: 065
     Dates: start: 20230830
  4. ABRILADA [Suspect]
     Active Substance: ADALIMUMAB-AFZB
     Indication: Product used for unknown indication
     Dosage: END DATE: 2023
     Route: 065
  5. ABRILADA [Suspect]
     Active Substance: ADALIMUMAB-AFZB
     Indication: Product used for unknown indication
     Route: 065
     Dates: start: 2023
  6. ABRILADA [Suspect]
     Active Substance: ADALIMUMAB-AFZB
     Indication: Product used for unknown indication
     Route: 065
     Dates: start: 20231215

REACTIONS (6)
  - Haemorrhoids [Unknown]
  - Headache [Recovered/Resolved]
  - Condition aggravated [Not Recovered/Not Resolved]
  - Colitis ulcerative [Not Recovered/Not Resolved]
  - Anorectal discomfort [Not Recovered/Not Resolved]
  - Off label use [Unknown]

NARRATIVE: CASE EVENT DATE: 20230101
